FAERS Safety Report 18282869 (Version 1)
Quarter: 2020Q3

REPORT INFORMATION
  Report Type: Spontaneous
  Country: US (occurrence: US)
  Receive Date: 20200918
  Receipt Date: 20200918
  Transmission Date: 20201103
  Serious: No
  Sender: FDA-Public Use
  Company Number: None

PATIENT
  Sex: Female
  Weight: 139.2 kg

DRUGS (10)
  1. ATORVASTATIN CALCIUM. [Concomitant]
     Active Substance: ATORVASTATIN CALCIUM
  2. FISH OIL BURP?LESS [Concomitant]
  3. XARELTO [Concomitant]
     Active Substance: RIVAROXABAN
  4. ZOLADEX [Concomitant]
     Active Substance: GOSERELIN ACETATE
  5. CAPECITABINE. [Suspect]
     Active Substance: CAPECITABINE
     Indication: BREAST CANCER
     Route: 048
     Dates: start: 20200901, end: 20200918
  6. DUEXIS [Concomitant]
     Active Substance: FAMOTIDINE\IBUPROFEN
  7. XGEVA [Concomitant]
     Active Substance: DENOSUMAB
  8. FASLODEX [Concomitant]
     Active Substance: FULVESTRANT
  9. LOSARTAN POTASSIUM. [Concomitant]
     Active Substance: LOSARTAN POTASSIUM
  10. METFORMIN HCL ER (OSM) [Concomitant]
     Active Substance: METFORMIN HYDROCHLORIDE

REACTIONS (1)
  - Hospice care [None]
